FAERS Safety Report 6826297-6 (Version None)
Quarter: 2010Q3

REPORT INFORMATION
  Report Type: 
  Country: None (occurrence: None)
  Receive Date: 20100709
  Receipt Date: 20100702
  Transmission Date: 20110219
  Serious: Yes (Life-Threatening, Other)
  Sender: FDA-Public Use
  Company Number: PHHY2010JP43597

PATIENT

DRUGS (2)
  1. NEORAL [Suspect]
     Indication: STEM CELL TRANSPLANT
     Route: 048
  2. SANDIMMUNE [Suspect]
     Indication: STEM CELL TRANSPLANT
     Route: 042

REACTIONS (5)
  - ENDOTRACHEAL INTUBATION [None]
  - GRAFT VERSUS HOST DISEASE [None]
  - HYPOMAGNESAEMIA [None]
  - MYALGIA [None]
  - RHABDOMYOLYSIS [None]
